FAERS Safety Report 5834088-8 (Version None)
Quarter: 2008Q3

REPORT INFORMATION
  Report Type: 
  Country: None (occurrence: None)
  Receive Date: 20080805
  Receipt Date: 20080730
  Transmission Date: 20090109
  Serious: Yes (Death, Other)
  Sender: FDA-Public Use
  Company Number: US-BRISTOL-MYERS SQUIBB COMPANY-14285712

PATIENT
  Age: 17 Year
  Sex: Male

DRUGS (5)
  1. CYCLOPHOSPHAMIDE [Suspect]
     Indication: BONE MARROW CONDITIONING REGIMEN
  2. CYTARABINE [Suspect]
     Indication: BONE MARROW CONDITIONING REGIMEN
  3. RADIATION THERAPY [Suspect]
     Indication: BONE MARROW CONDITIONING REGIMEN
  4. THYMOGLOBULIN [Suspect]
     Indication: IMMUNOSUPPRESSION
  5. CYCLOSPORINE [Suspect]
     Indication: IMMUNOSUPPRESSION

REACTIONS (2)
  - GUILLAIN-BARRE SYNDROME [None]
  - MALIGNANT NEOPLASM PROGRESSION [None]
